FAERS Safety Report 15832248 (Version 1)
Quarter: 2019Q1

REPORT INFORMATION
  Report Type: Spontaneous
  Country: US (occurrence: US)
  Receive Date: 20190115
  Receipt Date: 20190115
  Transmission Date: 20190417
  Serious: Yes (Other)
  Sender: FDA-Public Use
  Company Number: None

PATIENT
  Age: 16 Year
  Sex: Male
  Weight: 72 kg

DRUGS (1)
  1. PHENERGAN [Suspect]
     Active Substance: PROMETHAZINE HYDROCHLORIDE
     Indication: NAUSEA
     Dosage: ?          QUANTITY:1 TABLET(S);?
     Route: 048
     Dates: start: 20180913, end: 20180914

REACTIONS (9)
  - Vomiting [None]
  - Decreased appetite [None]
  - Depressed mood [None]
  - Anger [None]
  - Abnormal behaviour [None]
  - Aggression [None]
  - Dehydration [None]
  - Suicidal ideation [None]
  - Hallucination [None]

NARRATIVE: CASE EVENT DATE: 20180915
